FAERS Safety Report 4877268-0 (Version None)
Quarter: 2006Q1

REPORT INFORMATION
  Report Type: 
  Country: None (occurrence: None)
  Receive Date: 20060106
  Receipt Date: 20051229
  Transmission Date: 20060701
  Serious: Yes (Death)
  Sender: FDA-Public Use
  Company Number: 2005JP002297

PATIENT
  Age: 48 Year
  Sex: Male
  Weight: 72 kg

DRUGS (8)
  1. FUNGUARD (MICAFUNGIN INJECTION) [Suspect]
     Indication: RESPIRATORY MONILIASIS
     Dosage: 150 MG, UID/QD, IV DRIP; 150 MG, UID, IV DRIP; 300  MG, UID/QD, IV DRIP
     Route: 041
     Dates: start: 20050921, end: 20050922
  2. FUNGUARD (MICAFUNGIN INJECTION) [Suspect]
     Indication: RESPIRATORY MONILIASIS
     Dosage: 150 MG, UID/QD, IV DRIP; 150 MG, UID, IV DRIP; 300  MG, UID/QD, IV DRIP
     Route: 041
     Dates: start: 20050929, end: 20051002
  3. FUNGUARD (MICAFUNGIN INJECTION) [Suspect]
     Indication: RESPIRATORY MONILIASIS
     Dosage: 150 MG, UID/QD, IV DRIP; 150 MG, UID, IV DRIP; 300  MG, UID/QD, IV DRIP
     Route: 041
     Dates: start: 20051003, end: 20051009
  4. CIPROFLOXACIN HYDROCHLORIDE [Concomitant]
  5. FUTHAN (NAFAMOSTAT MESILATE) INJECTION [Concomitant]
  6. TIENAM (IMIPENEM, CILASTATIN) INJECTION [Concomitant]
  7. INOVAN (DOPAMINE HYDROCHLORIDE) INJECTION [Concomitant]
  8. MIRACLID (ULINASTATIN) INJECTION [Concomitant]

REACTIONS (3)
  - CONDITION AGGRAVATED [None]
  - MULTI-ORGAN FAILURE [None]
  - PANCREATITIS [None]
